FAERS Safety Report 8336388-9 (Version None)
Quarter: 2012Q2

REPORT INFORMATION
  Report Type: 
  Country: None (occurrence: None)
  Receive Date: 20120501
  Receipt Date: 20120409
  Transmission Date: 20120825
  Serious: Yes (Other)
  Sender: FDA-Public Use
  Company Number: 54973

PATIENT
  Age: 2 Year
  Sex: Male

DRUGS (1)
  1. HYLAND'S NIGHTTIME COLD 'N COUGH 4 KIDS LIQUID [Suspect]
     Indication: NASOPHARYNGITIS
     Dosage: 1 TEASPOON ON 3/19+3/20

REACTIONS (4)
  - STEVENS-JOHNSON SYNDROME [None]
  - SKIN DISCOLOURATION [None]
  - SKIN INFECTION [None]
  - SKIN DISORDER [None]
